FAERS Safety Report 5532194-9 (Version None)
Quarter: 2007Q4

REPORT INFORMATION
  Report Type: 
  Country: None (occurrence: None)
  Receive Date: 20071128
  Receipt Date: 20071114
  Transmission Date: 20080405
  Serious: Yes (Other)
  Sender: FDA-Public Use
  Company Number: 07H-008-0313469-00

PATIENT
  Age: 58 Year
  Sex: Female

DRUGS (17)
  1. PRECEDEX [Suspect]
     Indication: AUTONOMIC NERVOUS SYSTEM IMBALANCE
     Dosage: 0.4 MCG/KG/HR, INFUSION
  2. ANTIBIOTICS (ANTIBIOTICS) [Concomitant]
  3. METRONIDAZOLE [Concomitant]
  4. ERYTHROMYCIN [Concomitant]
  5. GENTAMICIN SULFATE [Concomitant]
  6. TETANUS IMMUNOGLOBULIN (IMMUNOGLOBULIN HUMAN ANTI-TETANUS) [Concomitant]
  7. CEFTRIAXONE [Concomitant]
  8. MIDAZOLAM HCL [Concomitant]
  9. DIAZEPAM [Concomitant]
  10. MORPHINE [Concomitant]
  11. MAGNESIUM (MAGNESIUM) [Concomitant]
  12. BACLOFEN [Concomitant]
  13. VECURONIUM (VECURONIUM) [Concomitant]
  14. NOREPINEPHRINE BITARTRATE [Concomitant]
  15. PROPOFOL [Concomitant]
  16. CLONIDINE [Concomitant]
  17. THIOPENTAL SODIUM [Concomitant]

REACTIONS (3)
  - AUTONOMIC NERVOUS SYSTEM IMBALANCE [None]
  - BLOOD PRESSURE FLUCTUATION [None]
  - HEART RATE ABNORMAL [None]
